FAERS Safety Report 25830648 (Version 2)
Quarter: 2025Q3

REPORT INFORMATION
  Report Type: Spontaneous
  Country: JP (occurrence: JP)
  Receive Date: 20250922
  Receipt Date: 20250930
  Transmission Date: 20251020
  Serious: Yes (Other)
  Sender: ASTELLAS
  Company Number: JP-ASTELLAS-2025-AER-052216

PATIENT
  Age: 85 Year
  Sex: Male

DRUGS (3)
  1. CRESEMBA [Suspect]
     Active Substance: ISAVUCONAZONIUM SULFATE
     Indication: Bronchopulmonary aspergillosis
     Dosage: CAPSULE, HARD
     Route: 048
  2. CRESEMBA [Suspect]
     Active Substance: ISAVUCONAZONIUM SULFATE
     Dosage: CAPSULE, HARD?100 MG AS A LOADING DOSE.
     Route: 048
     Dates: start: 20250822, end: 20250908
  3. DAYVIGO [Suspect]
     Active Substance: LEMBOREXANT
     Indication: Product used for unknown indication
     Route: 065

REACTIONS (6)
  - Hemiparesis [Unknown]
  - Altered state of consciousness [Recovering/Resolving]
  - Muscular weakness [Recovering/Resolving]
  - Decreased appetite [Recovered/Resolved]
  - Drug interaction [Unknown]
  - Off label use [Unknown]

NARRATIVE: CASE EVENT DATE: 20250906
